FAERS Safety Report 4865053-5 (Version None)
Quarter: 2005Q4

REPORT INFORMATION
  Report Type: 
  Country: None (occurrence: None)
  Receive Date: 20051219
  Receipt Date: 20051205
  Transmission Date: 20060501
  Serious: Yes (Death, Hospitalization)
  Sender: FDA-Public Use
  Company Number: 2005158926

PATIENT
  Age: 52 Year
  Sex: Female
  Weight: 69 kg

DRUGS (4)
  1. GENOTROPIN [Suspect]
     Indication: HYPOPITUITARISM
     Dosage: 0.3 MG (0.3 MG QD) SUBCUTANEOUS
     Route: 058
     Dates: start: 19990601, end: 20031214
  2. SIMVASTATN [Concomitant]
  3. CORTISONE ACETATE [Concomitant]
  4. FOSAMAX [Concomitant]

REACTIONS (3)
  - COLON CANCER METASTATIC [None]
  - MALIGNANT NEOPLASM PROGRESSION [None]
  - THERAPY NON-RESPONDER [None]
